FAERS Safety Report 6051645-7 (Version None)
Quarter: 2009Q1

REPORT INFORMATION
  Report Type: 
  Country: None (occurrence: None)
  Receive Date: 20090121
  Receipt Date: 20090121
  Transmission Date: 20090719
  Serious: Yes (Other)
  Sender: FDA-Public Use
  Company Number: None

PATIENT
  Age: 35 Year
  Sex: Female
  Weight: 54.4316 kg

DRUGS (1)
  1. FIORICET [Suspect]
     Indication: MIGRAINE
     Dosage: 1 EVERY 4 HOURS PO
     Route: 048
     Dates: start: 20081126, end: 20081130

REACTIONS (5)
  - COUGH [None]
  - DRUG EXPOSURE DURING PREGNANCY [None]
  - INTRA-UTERINE DEATH [None]
  - MALAISE [None]
  - NAUSEA [None]
